FAERS Safety Report 6346951-2 (Version None)
Quarter: 2009Q3

REPORT INFORMATION
  Report Type: 
  Country: None (occurrence: None)
  Receive Date: 20090908
  Receipt Date: 20090908
  Transmission Date: 20100115
  Serious: Yes (Life-Threatening, Other)
  Sender: FDA-Public Use
  Company Number: None

PATIENT
  Age: 33 Year
  Sex: Male
  Weight: 88.4514 kg

DRUGS (4)
  1. CHANTIX [Suspect]
     Indication: SMOKING CESSATION THERAPY
     Dosage: WEEK ONE 1/2 AMOUNT ONCE IN MORNING PO; WEEK TWO FULL STRENGTH ONCE IN THE MORNING PO
     Route: 048
     Dates: start: 20090410, end: 20090510
  2. LISINOPRIL-HCTHZD [Concomitant]
  3. TOPROL-XL [Concomitant]
  4. AMBIEN [Concomitant]

REACTIONS (5)
  - ABNORMAL BEHAVIOUR [None]
  - ANGER [None]
  - HOMICIDAL IDEATION [None]
  - JOB DISSATISFACTION [None]
  - PERSONALITY CHANGE [None]
